FAERS Safety Report 14142153 (Version 1)
Quarter: 2017Q4

REPORT INFORMATION
  Report Type: Report from Study
  Country: None (occurrence: CO)
  Receive Date: 20171030
  Receipt Date: 20171030
  Transmission Date: 20180321
  Serious: Yes (Hospitalization)
  Sender: FDA-Public Use
  Company Number: CO-ABBVIE-17P-036-2146118-00

PATIENT
  Age: 1 Month
  Sex: Male
  Weight: 4 kg

DRUGS (1)
  1. SYNAGIS [Suspect]
     Active Substance: PALIVIZUMAB
     Indication: BRONCHOPULMONARY DYSPLASIA
     Route: 030
     Dates: start: 20170928, end: 20170928

REACTIONS (4)
  - Irritability [Recovering/Resolving]
  - Decreased appetite [Recovering/Resolving]
  - Localised oedema [Recovering/Resolving]
  - Inguinal hernia [Recovering/Resolving]

NARRATIVE: CASE EVENT DATE: 20171021
